FAERS Safety Report 9377146 (Version 2)
Quarter: 2013Q3

REPORT INFORMATION
  Report Type: Report from Study
  Country: KP (occurrence: KP)
  Receive Date: 20130701
  Receipt Date: 20130703
  Transmission Date: 20140515
  Serious: Yes (Hospitalization)
  Sender: FDA-Public Use
  Company Number: KP-ROCHE-1242768

PATIENT
  Age: 78 Year
  Sex: Female

DRUGS (9)
  1. RITUXIMAB [Suspect]
     Indication: MALIGNANT LYMPHOID NEOPLASM
     Dosage: DATE OF LAST DOSE PRIOR TO SAE: 13/DEC/2011
     Route: 042
     Dates: start: 20111010
  2. RITUXIMAB [Suspect]
     Route: 042
     Dates: start: 20120110
  3. CYCLOPHOSPHAMIDE [Suspect]
     Indication: MALIGNANT LYMPHOID NEOPLASM
     Dosage: DATE OF LAST DOSE PRIOR TO SAE: 13/DEC/2011
     Route: 042
     Dates: start: 20111010
  4. CYCLOPHOSPHAMIDE [Suspect]
     Route: 042
     Dates: start: 20120110
  5. DOXORUBICIN [Suspect]
     Indication: MALIGNANT LYMPHOID NEOPLASM
     Dosage: DATE OF LAST DOSE PRIOR TO SAE: 13/DEC/2011
     Route: 042
     Dates: start: 20111010
  6. DOXORUBICIN [Suspect]
     Route: 042
     Dates: start: 20120110
  7. CANDESARTAN [Concomitant]
     Route: 065
     Dates: start: 20110909
  8. ISOSORBIDE DINITRATE [Concomitant]
     Route: 065
     Dates: start: 20110808
  9. LASIX [Concomitant]
     Route: 065
     Dates: start: 20111207

REACTIONS (1)
  - Enterocolitis [Recovered/Resolved]
